FAERS Safety Report 25361973 (Version 1)
Quarter: 2025Q2

REPORT INFORMATION
  Report Type: Spontaneous
  Country: US (occurrence: US)
  Receive Date: 20250527
  Receipt Date: 20250527
  Transmission Date: 20250717
  Serious: Yes (Hospitalization, Other)
  Sender: RANBAXY
  Company Number: US-MIMS-SUN-2025-USA-54593

PATIENT
  Sex: Male

DRUGS (1)
  1. ODOMZO [Suspect]
     Active Substance: SONIDEGIB
     Indication: Basal cell carcinoma
     Dosage: 200 MILLIGRAM, QD
     Route: 048
     Dates: start: 20250224

REACTIONS (6)
  - Myalgia [Unknown]
  - Illness [Unknown]
  - Liver injury [Unknown]
  - Renal disorder [Unknown]
  - Asthenia [Unknown]
  - Drug ineffective [Unknown]
